FAERS Safety Report 13406035 (Version 1)
Quarter: 2017Q2

REPORT INFORMATION
  Report Type: Report from Study
  Country: IN (occurrence: IN)
  Receive Date: 20170405
  Receipt Date: 20170405
  Transmission Date: 20170830
  Serious: Yes (Death)
  Sender: FDA-Public Use
  Company Number: IN-CIPLA LTD.-2017IN06410

PATIENT

DRUGS (6)
  1. CARBOPLATIN. [Suspect]
     Active Substance: CARBOPLATIN
     Indication: RETINOBLASTOMA
     Dosage: UNK, ON DAYS 1 AND 2, EVERY SIX WEEKS
     Route: 065
  2. CYCLOPHOSPHAMIDE. [Suspect]
     Active Substance: CYCLOPHOSPHAMIDE
     Indication: RETINOBLASTOMA
     Dosage: 65 MG/KG, ON DAY 1, EVERY SIX WEEKS
     Route: 065
  3. MESNA. [Suspect]
     Active Substance: MESNA
     Indication: RETINOBLASTOMA
     Dosage: 60 MG/KG, UNK
     Route: 065
  4. VINCRISTINE [Suspect]
     Active Substance: VINCRISTINE
     Indication: RETINOBLASTOMA
     Dosage: UNK, ON DAY 1, EVERY SIX WEEKS
     Route: 065
  5. ETOPOSIDE. [Suspect]
     Active Substance: ETOPOSIDE
     Indication: RETINOBLASTOMA
     Dosage: UNK, ON DAYS 1, 2, AND 3  EVERY SIX WEEKS
     Route: 065
  6. IDARUBICIN [Suspect]
     Active Substance: IDARUBICIN
     Indication: RETINOBLASTOMA
     Dosage: 10 MG/M2, ON DAY 1, EVERY SIX WEEKS
     Route: 065

REACTIONS (1)
  - Metastasis [Fatal]
